FAERS Safety Report 8172896-1 (Version None)
Quarter: 2012Q1

REPORT INFORMATION
  Report Type: 
  Country: None (occurrence: None)
  Receive Date: 20120223
  Receipt Date: 20120214
  Transmission Date: 20120608
  Serious: Yes (Death, Hospitalization)
  Sender: FDA-Public Use
  Company Number: UTC-010064

PATIENT
  Age: 2 Year
  Sex: Female
  Weight: 8.18 kg

DRUGS (6)
  1. REVATIO [Concomitant]
  2. TRACLEER [Concomitant]
  3. DIURETICS (DIURETICS) [Concomitant]
  4. DIGOXIN [Concomitant]
  5. REMODULIN [Suspect]
     Indication: COR PULMONALE CHRONIC
     Dosage: .0132 - .014 UG/KG (1 IN 1 MIN),SUBCUTANEOUS
     Route: 058
     Dates: start: 20110517
  6. ASPIRIN [Concomitant]

REACTIONS (1)
  - PULMONARY HYPERTENSION [None]
